FAERS Safety Report 5267849-7 (Version None)
Quarter: 2007Q1

REPORT INFORMATION
  Report Type: 
  Country: None (occurrence: None)
  Receive Date: 20061213
  Receipt Date: 20050823
  Transmission Date: 20070707
  Serious: Yes (Other)
  Sender: FDA-Public Use
  Company Number: 2005UW12504

PATIENT
  Age: 58 Year
  Sex: Male
  Weight: 108.4 kg

DRUGS (2)
  1. IRESSA [Suspect]
     Dates: start: 20041208
  2. UNSPECIFIED MEDICATIONS [Concomitant]

REACTIONS (1)
  - AMNESIA [None]
